FAERS Safety Report 7472267-7 (Version None)
Quarter: 2011Q2

REPORT INFORMATION
  Report Type: 
  Country: None (occurrence: None)
  Receive Date: 20110502
  Receipt Date: 20110419
  Transmission Date: 20111010
  Serious: Yes (Death, Other)
  Sender: FDA-Public Use
  Company Number: OMPQ-NO-1104S-0371

PATIENT
  Sex: Male

DRUGS (2)
  1. OMNIPAQUE 70 [Suspect]
     Indication: HEART DISEASE CONGENITAL
     Dosage: 7 ML, SINGLE DOSE, INTRAVENOUS
     Route: 042
     Dates: start: 20110419, end: 20110419
  2. PROPRANOLOL [Concomitant]

REACTIONS (3)
  - PYREXIA [None]
  - CHILLS [None]
  - LOSS OF CONSCIOUSNESS [None]
